FAERS Safety Report 11078321 (Version 2)
Quarter: 2015Q3

REPORT INFORMATION
  Report Type: Spontaneous
  Country: US (occurrence: US)
  Receive Date: 20150430
  Receipt Date: 20150812
  Transmission Date: 20151125
  Serious: Yes (Congenital Anomaly, Other)
  Sender: FDA-Public Use
  Company Number: US-JNJFOC-20150420315

PATIENT

DRUGS (1)
  1. TOPIRAMATE. [Suspect]
     Active Substance: TOPIRAMATE
     Indication: PRODUCT USED FOR UNKNOWN INDICATION
     Route: 064

REACTIONS (11)
  - Atrial septal defect [Unknown]
  - Hypospadias [Unknown]
  - Coarctation of the aorta [Unknown]
  - Patent ductus arteriosus [Unknown]
  - Foetal exposure during pregnancy [Recovered/Resolved]
  - Congenital genitourinary abnormality [Unknown]
  - Pulmonary valve stenosis [Unknown]
  - Ventricular septal defect [Unknown]
  - Congenital cardiovascular anomaly [Unknown]
  - Pyloric stenosis [Unknown]
  - Developmental hip dysplasia [Unknown]
